FAERS Safety Report 5060137-3 (Version None)
Quarter: 2006Q3

REPORT INFORMATION
  Report Type: 
  Country: None (occurrence: None)
  Receive Date: 20060719
  Receipt Date: 20051005
  Transmission Date: 20061208
  Serious: Yes (Other)
  Sender: FDA-Public Use
  Company Number: 000#8#2005-00716

PATIENT

DRUGS (2)
  1. ALPROSTADIL [Suspect]
     Indication: SKIN ULCER
     Dosage: 60 MG (60 MG 1 IN 1 DAY(S))
     Route: 041
  2. TOPICAL ANTISEPTICS [Concomitant]

REACTIONS (2)
  - DIARRHOEA [None]
  - VOMITING [None]
